FAERS Safety Report 10886572 (Version 3)
Quarter: 2015Q2

REPORT INFORMATION
  Report Type: Spontaneous
  Country: US (occurrence: US)
  Receive Date: 20150304
  Receipt Date: 20150617
  Transmission Date: 20150821
  Serious: Yes (Other)
  Sender: FDA-Public Use
  Company Number: US-GLAXOSMITHKLINE-US2015GSK028725

PATIENT
  Age: 56 Year
  Sex: Female

DRUGS (1)
  1. WELLBUTRIN SR [Suspect]
     Active Substance: BUPROPION HYDROCHLORIDE
     Indication: GENERALISED ANXIETY DISORDER
     Dosage: 150 MG, U
     Dates: start: 20090522

REACTIONS (3)
  - Thyroid disorder [Unknown]
  - Surgery [Unknown]
  - Parathyroidectomy [Unknown]

NARRATIVE: CASE EVENT DATE: 201503
